FAERS Safety Report 22056111 (Version 1)
Quarter: 2023Q1

REPORT INFORMATION
  Report Type: Spontaneous
  Country: TW (occurrence: TW)
  Receive Date: 20230302
  Receipt Date: 20230302
  Transmission Date: 20230418
  Serious: Yes (Life-Threatening)
  Sender: FDA-Public Use
  Company Number: TW-BIOCRYST PHARMACEUTICALS, INC.-2023BCR00173

PATIENT
  Age: 1 Year
  Sex: Female

DRUGS (1)
  1. RAPIACTA [Suspect]
     Active Substance: PERAMIVIR
     Indication: Influenza
     Dosage: UNK, ONCE
     Route: 042
     Dates: start: 20200124, end: 20200124

REACTIONS (2)
  - Febrile convulsion [Unknown]
  - Encephalopathy [Unknown]

NARRATIVE: CASE EVENT DATE: 20200125
